FAERS Safety Report 9640148 (Version 1)
Quarter: 2013Q4

REPORT INFORMATION
  Report Type: Spontaneous
  Country: US (occurrence: US)
  Receive Date: 20131023
  Receipt Date: 20131023
  Transmission Date: 20140711
  Serious: No
  Sender: FDA-Public Use
  Company Number: US-PFIZER INC-2013299747

PATIENT
  Age: 36 Year
  Sex: Female
  Weight: 62.59 kg

DRUGS (7)
  1. ENBREL [Suspect]
     Dosage: UNK
     Route: 065
  2. XELJANZ [Suspect]
     Dosage: 5 MG, BID
     Route: 048
  3. SIMVASTATIN [Concomitant]
     Dosage: 20 MG, UNK
  4. VITAMIN A [Concomitant]
     Dosage: 8000 IU, UNK
  5. VITAMIN D [Concomitant]
     Dosage: 50000 IU, UNK
  6. VITAMIN C [Concomitant]
     Dosage: 500 MG, UNK
  7. FISH OIL/TOCOPHEROL [Concomitant]
     Dosage: 340 MG, UNK

REACTIONS (1)
  - Drug hypersensitivity [Unknown]
